FAERS Safety Report 25807809 (Version 5)
Quarter: 2025Q4

REPORT INFORMATION
  Report Type: Spontaneous
  Country: US (occurrence: US)
  Receive Date: 20250916
  Receipt Date: 20251114
  Transmission Date: 20260117
  Serious: Yes (Other)
  Sender: PFIZER
  Company Number: US-PFIZER INC-202500179038

PATIENT
  Age: 14 Year
  Sex: Female
  Weight: 87.9 kg

DRUGS (4)
  1. ADCETRIS [Suspect]
     Active Substance: BRENTUXIMAB VEDOTIN
     Indication: Hodgkin^s disease stage IV
     Dosage: 175 MG, EVERY 3 WEEKS (EVERY 21 DAYS)
  2. ADCETRIS [Suspect]
     Active Substance: BRENTUXIMAB VEDOTIN
     Dosage: UNKNOWN DOSAGE OF INFUSION, EVERY 3 WEEKS
     Dates: start: 20250623
  3. ADCETRIS [Suspect]
     Active Substance: BRENTUXIMAB VEDOTIN
     Dosage: 170 MG, EVERY 3 WEEKS(170MG EVERY 21 DAYS)
  4. ADCETRIS [Suspect]
     Active Substance: BRENTUXIMAB VEDOTIN
     Dosage: 165 MG, Q (EVERY) 21 DAYS

REACTIONS (5)
  - Pancytopenia [Unknown]
  - Nausea [Unknown]
  - Vomiting [Unknown]
  - Weight decreased [Unknown]
  - Off label use [Unknown]
